FAERS Safety Report 20492978 (Version 1)
Quarter: 2022Q1

REPORT INFORMATION
  Report Type: Spontaneous
  Country: NO (occurrence: NO)
  Receive Date: 20220219
  Receipt Date: 20220219
  Transmission Date: 20220423
  Serious: Yes (Other)
  Sender: FDA-Public Use
  Company Number: None

PATIENT
  Age: 28 Year
  Sex: Female

DRUGS (5)
  1. AJOVY [Suspect]
     Active Substance: FREMANEZUMAB-VFRM
     Indication: Migraine
     Dosage: 1 PEN/DOSE.UNIT DOSE:1DF,ADDITIONAL INFORMATION:N02CD03 - FREMANEZUMAB -SUBTANCE NAME : FREMANEZUMAB
     Route: 058
     Dates: start: 202101, end: 20210325
  2. EFFEXOR [Concomitant]
     Active Substance: VENLAFAXINE HYDROCHLORIDE
     Indication: Migraine
     Dosage: EFEXOR DEPOT DEPOTKAPS 75 MG,ADDITIONAL INFORMATION:N06AX16 - VENLAFAXINE - ONGOING TREATMENTSUBTANC
     Dates: start: 2018
  3. VITAMINS [Concomitant]
     Active Substance: VITAMINS
  4. OMEGA 3 [Concomitant]
     Active Substance: CAPSAICIN
  5. PROPRANOLOL [Concomitant]
     Active Substance: PROPRANOLOL HYDROCHLORIDE
     Indication: Migraine
     Dosage: PRANOLOL TAB 80 MG,ADDITIONAL INFORMATION:C07AA05 - PROPRANOLOL - ONGOING TREATMENT
     Dates: start: 2017

REACTIONS (9)
  - Major depression [Unknown]
  - Somnolence [Unknown]
  - Fatigue [Not Recovered/Not Resolved]
  - Loss of personal independence in daily activities [Unknown]
  - Rash macular [Unknown]
  - Weight increased [Not Recovered/Not Resolved]
  - Depression [Not Recovered/Not Resolved]
  - Hypersomnia [Unknown]
  - Rash pruritic [Not Recovered/Not Resolved]

NARRATIVE: CASE EVENT DATE: 20210101
